APPROVED DRUG PRODUCT: DIOVAN
Active Ingredient: VALSARTAN
Strength: 320MG
Dosage Form/Route: TABLET;ORAL
Application: N021283 | Product #003 | TE Code: AB
Applicant: NOVARTIS PHARMACEUTICALS CORP
Approved: Jul 18, 2001 | RLD: Yes | RS: Yes | Type: RX